FAERS Safety Report 5103788-X (Version None)
Quarter: 2006Q3

REPORT INFORMATION
  Report Type: 
  Country: None (occurrence: None)
  Receive Date: 20060913
  Receipt Date: 20051219
  Transmission Date: 20061208
  Serious: Yes (Hospitalization)
  Sender: FDA-Public Use
  Company Number: BE-BRISTOL-MYERS SQUIBB COMPANY-13221510

PATIENT
  Age: 72 Year
  Sex: Female

DRUGS (4)
  1. CISPLATIN [Suspect]
     Indication: GASTRIC CANCER
     Route: 041
     Dates: start: 20051109, end: 20051109
  2. FLUOROURACIL [Suspect]
     Indication: GASTRIC CANCER
     Route: 041
     Dates: start: 20051109, end: 20051114
  3. WARFARIN SODIUM [Concomitant]
     Indication: VENOUS THROMBOSIS
     Route: 048
     Dates: start: 20051031
  4. VITAMIN B 1-6-12 [Concomitant]
     Indication: ASTHENIA
     Route: 048
     Dates: start: 20051118

REACTIONS (4)
  - CONTUSION [None]
  - FALL [None]
  - HAEMOGLOBIN DECREASED [None]
  - PERIPHERAL SENSORY NEUROPATHY [None]
